FAERS Safety Report 4698117-X (Version None)
Quarter: 2005Q2

REPORT INFORMATION
  Report Type: 
  Country: None (occurrence: None)
  Receive Date: 20050621
  Receipt Date: 20050608
  Transmission Date: 20051028
  Serious: Yes (Other)
  Sender: FDA-Public Use
  Company Number: 2005079482

PATIENT
  Age: 46 Year
  Sex: Female

DRUGS (3)
  1. ZITHROMAX [Suspect]
     Indication: NASOPHARYNGITIS
     Dosage: 500 MG (500 MG, DAILY), ORAL
     Route: 048
     Dates: start: 20050501, end: 20050501
  2. ZYRTEC-D 12 HOUR [Suspect]
     Indication: SINUS CONGESTION
     Dosage: (BID), ORAL
     Route: 048
     Dates: start: 20050512, end: 20050513
  3. MULTIPLE VITAMINS (ASCORBIC ACID, ERGOCALCIFEROL, FOLIC ACID, RETINOL, [Concomitant]

REACTIONS (9)
  - AGEUSIA [None]
  - ANOSMIA [None]
  - DEAFNESS [None]
  - DIARRHOEA [None]
  - DRUG INTERACTION [None]
  - HYPOACUSIS [None]
  - MYALGIA [None]
  - VISION BLURRED [None]
  - WEIGHT DECREASED [None]
